FAERS Safety Report 9983617 (Version 2)
Quarter: 2014Q2

REPORT INFORMATION
  Report Type: Spontaneous
  Country: OM (occurrence: OM)
  Receive Date: 20140307
  Receipt Date: 20140407
  Transmission Date: 20141212
  Serious: Yes (Other)
  Sender: FDA-Public Use
  Company Number: OM-JNJFOC-20140301638

PATIENT
  Sex: Female
  Weight: 155 kg

DRUGS (11)
  1. REMICADE [Suspect]
     Indication: PSORIASIS
     Dosage: 2ND INFUSION, AT 2 WEEKS
     Route: 042
     Dates: start: 2013
  2. REMICADE [Suspect]
     Indication: PSORIASIS
     Dosage: 3RD INFUSION, AT 6 WEEKS
     Route: 042
     Dates: start: 2013
  3. REMICADE [Suspect]
     Indication: PSORIASIS
     Route: 042
     Dates: end: 201401
  4. REMICADE [Suspect]
     Indication: PSORIASIS
     Dosage: FIRST INFUSION, 0 WEEKS
     Route: 042
     Dates: start: 20130918
  5. REMICADE [Suspect]
     Indication: PSORIATIC ARTHROPATHY
     Route: 042
     Dates: end: 201401
  6. REMICADE [Suspect]
     Indication: PSORIATIC ARTHROPATHY
     Dosage: FIRST INFUSION, 0 WEEKS
     Route: 042
     Dates: start: 20130918
  7. REMICADE [Suspect]
     Indication: PSORIATIC ARTHROPATHY
     Dosage: 3RD INFUSION, AT 6 WEEKS
     Route: 042
     Dates: start: 2013
  8. REMICADE [Suspect]
     Indication: PSORIATIC ARTHROPATHY
     Dosage: 2ND INFUSION, AT 2 WEEKS
     Route: 042
     Dates: start: 2013
  9. METHOTREXATE [Concomitant]
     Indication: HEPATIC ENZYME INCREASED
     Route: 048
  10. FOLIC ACID [Concomitant]
     Indication: HEPATIC ENZYME INCREASED
     Route: 048
  11. CALCIUM AND VITAMIN D3 [Concomitant]
     Route: 048
     Dates: start: 201304, end: 20130716

REACTIONS (1)
  - Myositis [Not Recovered/Not Resolved]
